FAERS Safety Report 4514563-9 (Version None)
Quarter: 2004Q4

REPORT INFORMATION
  Report Type: 
  Country: None (occurrence: None)
  Receive Date: 20041126
  Receipt Date: 20041117
  Transmission Date: 20050328
  Serious: Yes (Disabling)
  Sender: FDA-Public Use
  Company Number: DK-2004-035368

PATIENT
  Age: 25 Year
  Sex: Female

DRUGS (1)
  1. LEVONORGESTREL [Suspect]
     Indication: CONTRACEPTION
     Dosage: 20 UG/DAY, CONT, INTRA-UTERINE
     Route: 015
     Dates: start: 20000629, end: 20040831

REACTIONS (2)
  - IMPAIRED WORK ABILITY [None]
  - URTICARIA [None]
